FAERS Safety Report 19771796 (Version 6)
Quarter: 2022Q1

REPORT INFORMATION
  Report Type: Report from Study
  Country: JP (occurrence: JP)
  Receive Date: 20210831
  Receipt Date: 20220207
  Transmission Date: 20220423
  Serious: Yes (Hospitalization)
  Sender: FDA-Public Use
  Company Number: JP-JNJFOC-A-CH2019-185202

PATIENT
  Age: 11 Year
  Sex: Female
  Weight: 38.3 kg

DRUGS (30)
  1. OPSUMIT [Suspect]
     Active Substance: MACITENTAN
     Indication: Pulmonary arterial hypertension
     Route: 048
     Dates: start: 20180913, end: 20180925
  2. OPSUMIT [Suspect]
     Active Substance: MACITENTAN
     Indication: Pulmonary arterial hypertension
     Route: 048
     Dates: start: 20180926, end: 20181004
  3. OPSUMIT [Suspect]
     Active Substance: MACITENTAN
     Route: 048
     Dates: start: 20181005, end: 20181015
  4. OPSUMIT [Suspect]
     Active Substance: MACITENTAN
     Route: 048
     Dates: start: 20181016
  5. OPSUMIT [Suspect]
     Active Substance: MACITENTAN
     Route: 048
  6. UPTRAVI [Suspect]
     Active Substance: SELEXIPAG
     Indication: Pulmonary arterial hypertension
     Route: 048
     Dates: start: 20180911, end: 20180917
  7. UPTRAVI [Suspect]
     Active Substance: SELEXIPAG
     Indication: Pulmonary arterial hypertension
     Route: 048
     Dates: start: 20180918, end: 20180927
  8. UPTRAVI [Suspect]
     Active Substance: SELEXIPAG
     Route: 048
     Dates: start: 20180928, end: 20181112
  9. UPTRAVI [Suspect]
     Active Substance: SELEXIPAG
     Route: 048
     Dates: start: 20181113, end: 20181217
  10. UPTRAVI [Suspect]
     Active Substance: SELEXIPAG
     Route: 048
     Dates: start: 20181218, end: 20181228
  11. UPTRAVI [Suspect]
     Active Substance: SELEXIPAG
     Route: 048
     Dates: start: 20181229, end: 20190213
  12. UPTRAVI [Suspect]
     Active Substance: SELEXIPAG
     Route: 048
     Dates: start: 20190214, end: 20190225
  13. UPTRAVI [Suspect]
     Active Substance: SELEXIPAG
     Route: 048
     Dates: start: 20190226, end: 20190228
  14. UPTRAVI [Suspect]
     Active Substance: SELEXIPAG
     Route: 048
     Dates: start: 20190301, end: 20190305
  15. UPTRAVI [Suspect]
     Active Substance: SELEXIPAG
     Dosage: 1.1-0.4MGX2 TIMES/DAY
     Route: 048
     Dates: start: 20190306
  16. FLOLAN [Suspect]
     Active Substance: EPOPROSTENOL SODIUM
     Indication: Pulmonary arterial hypertension
     Dosage: 0.5-40 NG/KG/MIN
     Route: 042
     Dates: start: 20190207
  17. FLOLAN [Suspect]
     Active Substance: EPOPROSTENOL SODIUM
     Indication: Pulmonary arterial hypertension
     Dosage: 0.5-40 NG/KG/MIN
     Route: 041
     Dates: start: 20190207
  18. FLOLAN [Suspect]
     Active Substance: EPOPROSTENOL SODIUM
     Dosage: 40-80NG/KG/MIN
     Route: 041
  19. ADEMPAS [Concomitant]
     Active Substance: RIOCIGUAT
     Indication: Pulmonary arterial hypertension
     Route: 065
     Dates: start: 20180915
  20. OXYGEN [Concomitant]
     Active Substance: OXYGEN
  21. RIOCIGUAT [Concomitant]
     Active Substance: RIOCIGUAT
     Indication: Pulmonary arterial hypertension
     Dosage: 1.0-2.5MG
     Route: 048
     Dates: start: 20180915
  22. RIOCIGUAT [Concomitant]
     Active Substance: RIOCIGUAT
     Route: 048
  23. ALDACTONE [Concomitant]
     Active Substance: SPIRONOLACTONE
     Route: 048
  24. VENTAVIS [Concomitant]
     Active Substance: ILOPROST
     Indication: Pulmonary arterial hypertension
     Dosage: 2-4 TIMES/DAY
     Route: 055
     Dates: start: 20190718
  25. VENTAVIS [Concomitant]
     Active Substance: ILOPROST
     Dosage: 2-4 TIMES/DAY
     Route: 055
  26. FUROSEMIDE [Concomitant]
     Active Substance: FUROSEMIDE
     Indication: Pericardial effusion
     Route: 048
     Dates: start: 20180916
  27. FUROSEMIDE [Concomitant]
     Active Substance: FUROSEMIDE
     Indication: Cardiac failure
     Dosage: 20-10MG
     Route: 048
     Dates: start: 20190415
  28. FUROSEMIDE [Concomitant]
     Active Substance: FUROSEMIDE
     Route: 048
     Dates: start: 20190831, end: 20190911
  29. SPIRONOLACTONE [Concomitant]
     Active Substance: SPIRONOLACTONE
     Indication: Pericardial effusion
     Route: 048
     Dates: start: 20180916
  30. BISOPROLOL FUMARATE [Concomitant]
     Active Substance: BISOPROLOL FUMARATE
     Indication: Tachycardia
     Dates: start: 20200420

REACTIONS (9)
  - Device related infection [Recovered/Resolved]
  - Chest wall tumour [Not Recovered/Not Resolved]
  - Pericardial effusion [Recovering/Resolving]
  - Blood pressure decreased [Recovered/Resolved]
  - Nausea [Recovering/Resolving]
  - Dyspnoea [Recovering/Resolving]
  - Cardiomegaly [Recovering/Resolving]
  - Platelet count decreased [Not Recovered/Not Resolved]
  - Vomiting [Recovering/Resolving]

NARRATIVE: CASE EVENT DATE: 20180916
